FAERS Safety Report 9011113 (Version 1)
Quarter: 2013Q1

REPORT INFORMATION
  Report Type: Spontaneous
  Country: US (occurrence: US)
  Receive Date: 20130111
  Receipt Date: 20130111
  Transmission Date: 20140127
  Serious: Yes (Other)
  Sender: FDA-Public Use
  Company Number: US-009507513-1301USA002814

PATIENT
  Age: 3 Year
  Sex: Female

DRUGS (5)
  1. SINGULAIR [Suspect]
     Dosage: UNK UNK, QD
     Route: 048
  2. ZITROMAX [Suspect]
  3. DECADRON (DEXAMETHASONE) [Suspect]
     Dosage: 1 MG, QD
  4. XYZAL [Suspect]
  5. ZYRTEC [Suspect]
     Dosage: 5 ML, ONCE
     Route: 048

REACTIONS (2)
  - Anaphylactic shock [Unknown]
  - Urticaria [Unknown]
